FAERS Safety Report 8350252-0 (Version None)
Quarter: 2012Q2

REPORT INFORMATION
  Report Type: 
  Country: None (occurrence: None)
  Receive Date: 20120510
  Receipt Date: 20120502
  Transmission Date: 20120825
  Serious: Yes (Death, Other)
  Sender: FDA-Public Use
  Company Number: FR-ROCHE-GNE301720

PATIENT
  Sex: Female

DRUGS (8)
  1. RANIBIZUMAB [Suspect]
     Dates: start: 20090810
  2. RANIBIZUMAB [Suspect]
     Dates: start: 20081117
  3. RANIBIZUMAB [Suspect]
     Dates: start: 20100621
  4. RANIBIZUMAB [Suspect]
     Indication: AGE-RELATED MACULAR DEGENERATION
     Route: 050
     Dates: start: 20080915
  5. RANIBIZUMAB [Suspect]
     Dates: start: 20090706
  6. RANIBIZUMAB [Suspect]
     Dates: start: 20100830
  7. RANIBIZUMAB [Suspect]
     Dates: start: 20090202
  8. RANIBIZUMAB [Suspect]
     Dates: start: 20100726

REACTIONS (2)
  - BRAIN NEOPLASM [None]
  - RETINAL PIGMENT EPITHELIAL TEAR [None]
